FAERS Safety Report 4710880-8 (Version None)
Quarter: 2005Q3

REPORT INFORMATION
  Report Type: 
  Country: None (occurrence: None)
  Receive Date: 20050711
  Receipt Date: 20050704
  Transmission Date: 20060218
  Serious: Yes (Life-Threatening)
  Sender: FDA-Public Use
  Company Number: 408918

PATIENT
  Age: 61 Year
  Sex: Female

DRUGS (10)
  1. CARVEDILOL [Suspect]
     Indication: DRUG USE FOR UNKNOWN INDICATION
     Route: 048
     Dates: start: 20050506, end: 20050507
  2. ACEBUTOLOL [Suspect]
     Indication: ATRIAL FIBRILLATION
     Dosage: 200MG PER DAY
     Route: 048
     Dates: start: 20050418, end: 20050507
  3. DIGOXIN [Suspect]
     Indication: ATRIAL FIBRILLATION
     Route: 048
     Dates: start: 20050422
  4. AMIODARONE HCL [Suspect]
     Indication: ATRIAL FIBRILLATION
     Route: 048
     Dates: start: 20050424
  5. FLUINDIONE [Concomitant]
     Dates: start: 20050418
  6. FUROSEMIDE [Concomitant]
  7. PERINDOPRIL [Concomitant]
     Dates: start: 20050418
  8. ALDACTONE [Concomitant]
     Dates: start: 20050421, end: 20050427
  9. ASPIRIN [Concomitant]
     Dates: end: 20050508
  10. PRAVASTATIN [Concomitant]
     Dates: start: 20050419

REACTIONS (3)
  - BRADYCARDIA [None]
  - DRUG INTERACTION [None]
  - TACHYCARDIA [None]
